FAERS Safety Report 5344518-6 (Version None)
Quarter: 2007Q2

REPORT INFORMATION
  Report Type: 
  Country: None (occurrence: None)
  Receive Date: 20070604
  Receipt Date: 20070523
  Transmission Date: 20071010
  Serious: Yes (Death, Hospitalization, Other)
  Sender: FDA-Public Use
  Company Number: KR-PFIZER INC-2007041746

PATIENT
  Age: 50 Year
  Sex: Female

DRUGS (6)
  1. IDARUBICIN HCL [Suspect]
     Indication: ACUTE MYELOID LEUKAEMIA
     Dates: start: 20050701, end: 20050901
  2. ETOPOSIDE [Suspect]
     Indication: ACUTE MYELOID LEUKAEMIA
     Dates: start: 20050701, end: 20050701
  3. CISPLATIN [Suspect]
     Indication: OVARIAN EPITHELIAL CANCER
     Dates: start: 20010601, end: 20061101
  4. PACLITAXEL [Suspect]
     Indication: OVARIAN EPITHELIAL CANCER
     Dates: start: 20010601, end: 20061101
  5. TOPOTECAN [Suspect]
     Indication: OVARIAN EPITHELIAL CANCER
     Dates: start: 20040101, end: 20040301
  6. ENOCITABINE [Suspect]
     Indication: ACUTE MYELOID LEUKAEMIA

REACTIONS (5)
  - ACUTE MYELOID LEUKAEMIA [None]
  - ANAEMIA [None]
  - ASTHENIA [None]
  - RENAL FAILURE ACUTE [None]
  - THROMBOCYTOPENIA [None]
